FAERS Safety Report 8135568-5 (Version None)
Quarter: 2012Q1

REPORT INFORMATION
  Report Type: 
  Country: None (occurrence: None)
  Receive Date: 20120214
  Receipt Date: 20120203
  Transmission Date: 20120608
  Serious: Yes (Other)
  Sender: FDA-Public Use
  Company Number: PHEH2012US001849

PATIENT
  Sex: Female
  Weight: 77.098 kg

DRUGS (14)
  1. SPIRONOLACTONE [Concomitant]
     Dosage: 1 DF, UNK
     Route: 048
  2. VITAMIN B COMPLEX CAP [Concomitant]
     Dosage: 1 DF, UNK
     Route: 048
  3. CALCIUM CARBONATE [Concomitant]
     Dosage: 1 DF, UNK
     Route: 048
  4. ALLOPURINOL [Concomitant]
     Dosage: UNK UKN, UNK
     Route: 048
  5. ISOSORBIDE MONONITRATE [Concomitant]
     Dosage: 30 MG, UNK
     Route: 048
  6. TRAVATAN [Concomitant]
     Dosage: UNK UKN, UNK
  7. DIGOXIN [Concomitant]
     Dosage: 0.125 MG, UNK
     Route: 048
  8. LOVAZA [Concomitant]
     Dosage: 1 DF, UNK
     Route: 048
  9. TASIGNA [Suspect]
     Indication: CHRONIC MYELOID LEUKAEMIA
     Dosage: UNK UKN, UNK
     Route: 048
     Dates: start: 20111114, end: 20111115
  10. HYDRALAZINE HYDROCHLORIDE [Concomitant]
     Dosage: 100 MG, TID
  11. LASIX [Concomitant]
     Dosage: 20 MG, TID
  12. TOPROL-XL [Concomitant]
     Dosage: 50 MG, UNK
     Route: 048
  13. COUMADIN [Concomitant]
     Dosage: UNK UKN, UNK
  14. VERAPAMIL [Concomitant]
     Dosage: 120 MG, UNK
     Route: 048

REACTIONS (3)
  - ABDOMINAL PAIN UPPER [None]
  - WHITE BLOOD CELL COUNT INCREASED [None]
  - DRUG INTOLERANCE [None]
